FAERS Safety Report 9912467 (Version 1)
Quarter: 2014Q1

REPORT INFORMATION
  Report Type: Spontaneous
  Country: US (occurrence: US)
  Receive Date: 20140220
  Receipt Date: 20140220
  Transmission Date: 20141002
  Serious: Yes (Hospitalization)
  Sender: FDA-Public Use
  Company Number: US-ROCHE-1348242

PATIENT
  Sex: Male

DRUGS (8)
  1. RITUXAN [Suspect]
     Indication: B-CELL LYMPHOMA
     Dosage: START 4 MONTHS AGO, SEE B5
     Route: 065
     Dates: start: 2013
  2. CYTOXAN [Concomitant]
     Indication: B-CELL LYMPHOMA
     Dosage: START 4 MONTHS AGO, SEE B5
     Route: 065
     Dates: start: 2013
  3. ADRIAMYCIN [Concomitant]
     Indication: B-CELL LYMPHOMA
     Dosage: START 4 MONTHS AGO, SEE B5
     Route: 065
     Dates: start: 2013
  4. PREDNISONE [Concomitant]
     Indication: B-CELL LYMPHOMA
     Dosage: START 4 MONTHS AGO, SEE B5
     Route: 065
     Dates: start: 2013
  5. VINCRISTINE [Concomitant]
     Indication: B-CELL LYMPHOMA
     Dosage: START 4 MONTHS AGO, SEE B5
     Route: 065
     Dates: start: 2013
  6. LABETALOL HYDROCHLORIDE [Concomitant]
     Indication: HYPERTENSION
     Route: 065
  7. LISINOPRIL [Concomitant]
     Indication: HYPERTENSION
     Route: 065
  8. NORVASC [Concomitant]
     Indication: HYPERTENSION
     Route: 065

REACTIONS (2)
  - Pulmonary oedema [Unknown]
  - Dyspnoea [Recovering/Resolving]
